FAERS Safety Report 5193120-8 (Version None)
Quarter: 2006Q4

REPORT INFORMATION
  Report Type: 
  Country: None (occurrence: None)
  Receive Date: 20061228
  Receipt Date: 20060511
  Transmission Date: 20070319
  Serious: No
  Sender: FDA-Public Use
  Company Number: US-GLAXOSMITHKLINE-A0605236A

PATIENT
  Age: 71 Year
  Sex: Male

DRUGS (4)
  1. AVODART [Suspect]
     Indication: BENIGN PROSTATIC HYPERPLASIA
     Dosage: 1CAP PER DAY
     Route: 048
     Dates: start: 20040101
  2. FLOMAX [Concomitant]
  3. LESCOL [Concomitant]
  4. ZETIA [Concomitant]

REACTIONS (2)
  - GYNAECOMASTIA [None]
  - KIDNEY INFECTION [None]
